FAERS Safety Report 9586653 (Version 1)
Quarter: 2013Q4

REPORT INFORMATION
  Report Type: Spontaneous
  Country: BR (occurrence: BR)
  Receive Date: 20131003
  Receipt Date: 20131003
  Transmission Date: 20140711
  Serious: Yes (Other)
  Sender: FDA-Public Use
  Company Number: BR-PFIZER INC-2013279241

PATIENT
  Age: 25 Year
  Sex: Male
  Weight: 56 kg

DRUGS (3)
  1. SUTENT [Suspect]
     Indication: THYROID CANCER
     Dosage: 37.5 MG, 1X/DAY
     Route: 048
     Dates: start: 201301
  2. PURAN T4 [Concomitant]
     Indication: THYROID DISORDER
     Dosage: 200 MG, 1X/DAY
  3. MORPHINE [Concomitant]
     Indication: PAIN
     Dosage: 10 MG, DAILY

REACTIONS (2)
  - Tuberculosis [Unknown]
  - Off label use [Unknown]
